FAERS Safety Report 18850334 (Version 1)
Quarter: 2021Q1

REPORT INFORMATION
  Report Type: Spontaneous
  Country: CN (occurrence: CN)
  Receive Date: 20210204
  Receipt Date: 20210204
  Transmission Date: 20210420
  Serious: Yes (Other)
  Sender: FDA-Public Use
  Company Number: CN-BAXTER-2021BAX002382

PATIENT
  Age: 45 Year
  Sex: Female

DRUGS (4)
  1. ENDOXAN [Suspect]
     Active Substance: CYCLOPHOSPHAMIDE
     Indication: BREAST CANCER FEMALE
     Dosage: 0.9% NS 100 ML + CYCLOPHOSPHAMIDE 1 G
     Route: 041
     Dates: start: 20210116, end: 20210116
  2. 0.9% SODIUM CHLORIDE INJECTION [Suspect]
     Active Substance: SODIUM CHLORIDE
     Indication: MEDICATION DILUTION
     Dosage: 0.9% NS 100 ML + CYCLOPHOSPHAMIDE 1 G
     Route: 041
     Dates: start: 20210116, end: 20210116
  3. 0.9% SODIUM CHLORIDE INJECTION [Suspect]
     Active Substance: SODIUM CHLORIDE
     Dosage: 0.9% NS 100ML + EPIRUBICIN HYDROCHLORIDE 150 MG
     Route: 041
     Dates: start: 20210116, end: 20210116
  4. EPIRUBICIN HYDROCHLORIDE. [Suspect]
     Active Substance: EPIRUBICIN HYDROCHLORIDE
     Indication: BREAST CANCER FEMALE
     Dosage: 0.9% NS 100ML + EPIRUBICIN HYDROCHLORIDE 150 MG
     Route: 041
     Dates: start: 20210116, end: 20210116

REACTIONS (3)
  - Myelosuppression [Recovering/Resolving]
  - Vomiting [Recovering/Resolving]
  - Nausea [Recovering/Resolving]

NARRATIVE: CASE EVENT DATE: 20210118
